FAERS Safety Report 4289252-9 (Version None)
Quarter: 2004Q1

REPORT INFORMATION
  Report Type: 
  Country: None (occurrence: None)
  Receive Date: 20040206
  Receipt Date: 20040126
  Transmission Date: 20041129
  Serious: Yes (Hospitalization)
  Sender: FDA-Public Use
  Company Number: 2004AP00462

PATIENT
  Age: 54 Year
  Sex: Male

DRUGS (7)
  1. LISINOPRIL AND HYDROCHLOROTHIAZIDE [Suspect]
     Indication: HYPERTENSION
     Dates: start: 20001101
  2. ATENOLOL AND CHLORTHALIDONE [Suspect]
     Indication: HYPERTENSION
     Dates: start: 19990901, end: 20000301
  3. RAMIPRIL + HYDROCHLOROTHIAZIDE [Suspect]
     Indication: HYPERTENSION
     Dates: start: 19990401, end: 19990901
  4. ATENOLOL [Concomitant]
  5. MOXONIDINE [Concomitant]
  6. DOXAZOSIN MESYLATE [Concomitant]
  7. SIMVASTATIN [Concomitant]

REACTIONS (28)
  - ADRENAL NEOPLASM [None]
  - ASTHENIA [None]
  - BLOOD ALDOSTERONE INCREASED [None]
  - BLOOD CALCIUM INCREASED [None]
  - BLOOD CREATINE PHOSPHOKINASE INCREASED [None]
  - BLOOD MAGNESIUM INCREASED [None]
  - BLOOD PHOSPHORUS INCREASED [None]
  - BLOOD POTASSIUM INCREASED [None]
  - BLOOD PRESSURE INCREASED [None]
  - BLOOD TRIGLYCERIDES INCREASED [None]
  - DIPLOPIA [None]
  - FATIGUE [None]
  - FEAR [None]
  - HEMIPARESIS [None]
  - HYPERACUSIS [None]
  - HYPERHIDROSIS [None]
  - HYPOKALAEMIA [None]
  - ISCHAEMIA [None]
  - MEDICAL DIET [None]
  - METABOLIC ALKALOSIS [None]
  - MUSCLE CRAMP [None]
  - MYALGIA [None]
  - PALPITATIONS [None]
  - PARALYSIS [None]
  - PRIMARY HYPERALDOSTERONISM [None]
  - TACHYCARDIA [None]
  - URINE ELECTROLYTES INCREASED [None]
  - VERTIGO POSITIONAL [None]
